FAERS Safety Report 5210580-4 (Version None)
Quarter: 2006Q4

REPORT INFORMATION
  Report Type: 
  Country: None (occurrence: None)
  Receive Date: 20061106
  Receipt Date: 20060926
  Transmission Date: 20070319
  Serious: No
  Sender: FDA-Public Use
  Company Number: VNL_0221_2006

PATIENT
  Sex: Female

DRUGS (1)
  1. APOKYN [Suspect]
     Indication: PARKINSON'S DISEASE
     Dosage: 0.1 ML ONCE SC
     Route: 058
     Dates: start: 20060925

REACTIONS (1)
  - BLOOD PRESSURE DECREASED [None]
